FAERS Safety Report 4854975-7 (Version None)
Quarter: 2005Q4

REPORT INFORMATION
  Report Type: 
  Country: None (occurrence: None)
  Receive Date: 20051214
  Receipt Date: 20051201
  Transmission Date: 20060501
  Serious: Yes (Hospitalization, Other)
  Sender: FDA-Public Use
  Company Number: 2002JP006467

PATIENT
  Age: 30 Year
  Sex: Male
  Weight: 47 kg

DRUGS (8)
  1. PROTOPIC [Suspect]
     Indication: LICHEN PLANUS
     Dosage: 0.1 %, UNK, TOPICAL
     Route: 061
     Dates: start: 20020117, end: 20021114
  2. PROTOPIC [Suspect]
     Indication: LICHEN PLANUS
     Dosage: 0.1 %, UNK, TOPICAL
     Route: 061
     Dates: start: 20021115, end: 20021121
  3. PROTOPIC [Suspect]
     Indication: LICHEN PLANUS
     Dosage: 0.1 %, UNK, TOPICAL
     Route: 061
     Dates: start: 20021209
  4. VANCOMYCIN [Suspect]
     Dosage: 2 G, UNK, IV NOS
     Route: 042
     Dates: start: 20021024, end: 20021115
  5. AMIKACIN SULFATE [Suspect]
     Dosage: 400 MG, UNK, IV NOS
     Route: 042
     Dates: start: 20021026, end: 20021101
  6. DIFLUCAN (FLUCONAZOLE) [Concomitant]
  7. SOLU-MEDROL [Concomitant]
  8. PREDNISONE [Concomitant]

REACTIONS (3)
  - AGRANULOCYTOSIS [None]
  - HAEMOLYTIC URAEMIC SYNDROME [None]
  - RENAL IMPAIRMENT [None]
